FAERS Safety Report 17858589 (Version 2)
Quarter: 2020Q2

REPORT INFORMATION
  Report Type: Report from Study
  Country: None (occurrence: US)
  Receive Date: 20200604
  Receipt Date: 20200605
  Transmission Date: 20200714
  Serious: No
  Sender: FDA-Public Use
  Company Number: US-US WORLDMEDS, LLC-USW201911-002126

PATIENT
  Sex: Male

DRUGS (3)
  1. MIRAPEX [Concomitant]
     Active Substance: PRAMIPEXOLE DIHYDROCHLORIDE
  2. SINEMET [Concomitant]
     Active Substance: CARBIDOPA\LEVODOPA
  3. APOKYN [Suspect]
     Active Substance: APOMORPHINE HYDROCHLORIDE
     Indication: PARKINSON^S DISEASE
     Dosage: BEGAN APOKYN AROUND 18/OCT, ONCE PER WEEK BUT MORE COMMONLY ONCE EVERY 2-3 WEEKS
     Route: 058
     Dates: start: 201810

REACTIONS (4)
  - Tremor [Unknown]
  - Off label use [Unknown]
  - Adverse drug reaction [Unknown]
  - Product prescribing error [Unknown]
